FAERS Safety Report 6315071-5 (Version None)
Quarter: 2009Q3

REPORT INFORMATION
  Report Type: 
  Country: None (occurrence: None)
  Receive Date: 20090818
  Receipt Date: 20090818
  Transmission Date: 20100115
  Serious: No
  Sender: FDA-Public Use
  Company Number: None

PATIENT
  Age: 52 Year
  Sex: Female
  Weight: 76.2043 kg

DRUGS (1)
  1. FLUOROURACIL [Suspect]
     Indication: SKIN PAPILLOMA
     Dosage: HEADOF A Q-TIP 2 TIMES / DAY TOP
     Route: 061
     Dates: start: 20090815, end: 20090815

REACTIONS (2)
  - RASH ERYTHEMATOUS [None]
  - SCRATCH [None]
